FAERS Safety Report 10066172 (Version 1)
Quarter: 2014Q2

REPORT INFORMATION
  Report Type: Spontaneous
  Country: US (occurrence: US)
  Receive Date: 20140408
  Receipt Date: 20140408
  Transmission Date: 20141212
  Serious: No
  Sender: FDA-Public Use
  Company Number: US-PFIZER INC-2014097070

PATIENT
  Age: 47 Year
  Sex: Female
  Weight: 78.01 kg

DRUGS (2)
  1. CELEBREX [Suspect]
     Indication: TENDON INJURY
     Dosage: 200 MG, DAILY
     Dates: start: 20140403
  2. LISINOPRIL [Concomitant]
     Indication: HYPERTENSION
     Dosage: 12.5 MG, DAILY

REACTIONS (1)
  - Fatigue [Unknown]
